FAERS Safety Report 10073729 (Version 2)
Quarter: 2014Q2

REPORT INFORMATION
  Report Type: Report from Study
  Country: US (occurrence: US)
  Receive Date: 20140411
  Receipt Date: 20140501
  Transmission Date: 20141212
  Serious: Yes (Other)
  Sender: FDA-Public Use
  Company Number: US-ABBVIE-14P-163-1222136-00

PATIENT
  Age: 68 Year
  Sex: Male

DRUGS (12)
  1. HUMIRA [Suspect]
     Indication: PSORIATIC ARTHROPATHY
     Route: 058
     Dates: end: 201312
  2. HUMIRA [Suspect]
     Dates: start: 201401
  3. LOTREL [Concomitant]
     Indication: HYPERTENSION
     Dosage: 10 MG/40MG
  4. HCTZ [Concomitant]
     Indication: HYPERTENSION
  5. ATENOLOL [Concomitant]
     Indication: HYPERTENSION
  6. METHOTREXATE [Concomitant]
     Indication: PSORIATIC ARTHROPATHY
  7. FENOFIBRATE [Concomitant]
     Indication: BLOOD CHOLESTEROL
  8. FISH OIL [Concomitant]
     Indication: PRODUCT USED FOR UNKNOWN INDICATION
  9. METFORMIN [Concomitant]
     Indication: DIABETES MELLITUS
  10. LEVEMIR [Concomitant]
     Indication: DIABETES MELLITUS
     Dosage: INSULIN INJECTION 50 UNITS AM AND 30 UNITS EVENING DEPENDING ON BLOOD SUGARS
     Route: 050
  11. HUMALOG [Concomitant]
     Indication: DIABETES MELLITUS
     Dosage: DEPENDING ON BLOOD SUGARS
  12. PLAVIX [Concomitant]
     Indication: PRODUCT USED FOR UNKNOWN INDICATION
     Dates: end: 201312

REACTIONS (3)
  - Arthralgia [Recovering/Resolving]
  - Injection site pain [Unknown]
  - Meniscus injury [Recovering/Resolving]
